FAERS Safety Report 7990005-6 (Version None)
Quarter: 2011Q4

REPORT INFORMATION
  Report Type: 
  Country: None (occurrence: None)
  Receive Date: 20111219
  Receipt Date: 20110117
  Transmission Date: 20120403
  Serious: No
  Sender: FDA-Public Use
  Company Number: US-ASTRAZENECA-2010SE16004

PATIENT
  Sex: Female
  Weight: 53.1 kg

DRUGS (5)
  1. CRESTOR [Suspect]
     Indication: HYPERCHOLESTEROLAEMIA
     Route: 048
     Dates: start: 20100101
  2. AMBIEN [Concomitant]
     Indication: SLEEP DISORDER
  3. ASPIRIN [Concomitant]
  4. LOPRESSOR [Concomitant]
  5. CALCIUM MEDICATIONS [Concomitant]

REACTIONS (5)
  - FOOD ALLERGY [None]
  - ORAL PRURITUS [None]
  - PRURITUS GENERALISED [None]
  - FATIGUE [None]
  - NASAL DISCOMFORT [None]
